FAERS Safety Report 8411753 (Version 3)
Quarter: 2012Q4

REPORT INFORMATION
  Report Type: 
  Country: US (occurrence: US)
  Receive Date: 20120217
  Receipt Date: 20120907
  Transmission Date: 20130627
  Serious: Yes (Hospitalization, Other)
  Sender: FDA-Public Use
  Company Number: US-009507513-1202USA02450

PATIENT

DRUGS (18)
  1. FOSAMAX [Suspect]
     Indication: OSTEOPENIA
     Dosage: 70 mg, qw
     Route: 048
     Dates: start: 200502, end: 200802
  2. FOSAMAX [Suspect]
     Indication: OSTEOPOROSIS
  3. FOSAMAX [Suspect]
     Indication: OSTEOPENIA
     Dosage: 70 mg, qw
     Route: 048
     Dates: start: 20080303, end: 201002
  4. FOSAMAX [Suspect]
     Indication: OSTEOPENIA
  5. ALENDRONATE SODIUM [Suspect]
     Dosage: 70 mg, qw
     Dates: start: 20080624
  6. REMICADE [Concomitant]
  7. LEXAPRO [Concomitant]
  8. RESTORIL (CHLORMEZANONE) [Concomitant]
  9. EVISTA [Concomitant]
     Dosage: 60 mg, qd
  10. XANAX [Concomitant]
  11. PREVACID [Concomitant]
     Dosage: 30 mg, qd
  12. FOLIC ACID [Concomitant]
     Dosage: 1 mg, qd
     Dates: start: 2003
  13. SELECTIVE ESTROGEN RECEPTOR MODULATOR (UNSPECIFIED) [Concomitant]
     Dosage: 1 mg, qd
     Dates: start: 2003
  14. CYCLOBENZAPRINE HYDROCHLORIDE [Concomitant]
     Indication: RHEUMATOID ARTHRITIS
     Dosage: 15 mg, qd
  15. PLAQUENIL [Concomitant]
     Indication: RHEUMATOID ARTHRITIS
     Dosage: oral200 mg, bid
     Route: 048
  16. SULFASALAZINE [Concomitant]
     Indication: RHEUMATOID ARTHRITIS
     Dosage: 1000 mg, bid
     Route: 048
  17. ARAVA [Concomitant]
     Indication: PSORIATIC ARTHROPATHY
  18. FLEXITOL HEEL BALM [Concomitant]
     Indication: PSORIASIS

REACTIONS (39)
  - Femur fracture [Unknown]
  - Low turnover osteopathy [Unknown]
  - Vitamin D deficiency [Unknown]
  - Measles [Unknown]
  - Mumps [Unknown]
  - Varicella [Unknown]
  - Tonsillitis [Unknown]
  - Insomnia [Unknown]
  - Fibromyalgia [Unknown]
  - Haemorrhoids [Unknown]
  - Skin fissures [Unknown]
  - Paronychia [Unknown]
  - Bronchitis [Unknown]
  - Chronic obstructive pulmonary disease [Not Recovered/Not Resolved]
  - Cellulitis [Unknown]
  - Hypercholesterolaemia [Unknown]
  - Lumbar radiculopathy [Unknown]
  - Mass [Unknown]
  - Adverse event [Unknown]
  - Hypertension [Unknown]
  - Liver function test abnormal [Unknown]
  - Arthroscopy [Unknown]
  - Foot deformity [Unknown]
  - Sinus disorder [Unknown]
  - Anxiety [Unknown]
  - Bronchitis [Unknown]
  - Tachycardia [Unknown]
  - Constipation [Unknown]
  - Muscle spasms [Unknown]
  - Rash [Unknown]
  - Alopecia [Unknown]
  - Abdominal discomfort [Unknown]
  - Onychomycosis [Unknown]
  - Ingrowing nail [Not Recovered/Not Resolved]
  - Contusion [Unknown]
  - Osteoarthritis [Unknown]
  - Arthralgia [Unknown]
  - Arthralgia [Unknown]
  - Depression [Unknown]
